FAERS Safety Report 7805023-8 (Version None)
Quarter: 2011Q4

REPORT INFORMATION
  Report Type: 
  Country: None (occurrence: None)
  Receive Date: 20111010
  Receipt Date: 20111003
  Transmission Date: 20120403
  Serious: Yes (Death, Hospitalization)
  Sender: FDA-Public Use
  Company Number: US-GLAXOSMITHKLINE-A0946832A

PATIENT
  Age: 74 Year
  Sex: Male
  Weight: 103.2 kg

DRUGS (8)
  1. NITROGLYCERIN [Concomitant]
  2. LIPITOR [Concomitant]
  3. ASPIRIN [Concomitant]
  4. LISINOPRIL [Concomitant]
  5. AVANDIA [Suspect]
     Indication: DIABETES MELLITUS
     Route: 048
     Dates: end: 20040101
  6. ACCUPRIL [Concomitant]
  7. NIASPAN [Concomitant]
  8. GLYBURIDE [Concomitant]

REACTIONS (3)
  - CARDIAC FAILURE CONGESTIVE [None]
  - DEATH [None]
  - ACUTE MYOCARDIAL INFARCTION [None]
